FAERS Safety Report 21966223 (Version 1)
Quarter: 2023Q1

REPORT INFORMATION
  Report Type: Spontaneous
  Country: DE (occurrence: DE)
  Receive Date: 20230208
  Receipt Date: 20230208
  Transmission Date: 20230417
  Serious: No
  Sender: FDA-Public Use
  Company Number: None

PATIENT
  Sex: Female
  Weight: 73 kg

DRUGS (4)
  1. ATORVASTATIN CALCIUM [Suspect]
     Active Substance: ATORVASTATIN CALCIUM
     Indication: Type IIa hyperlipidaemia
     Dosage: 10 MILLIGRAM, QD (EVERY 1 DAY)
     Route: 065
     Dates: start: 201606, end: 201707
  2. EZETIMIBE [Suspect]
     Active Substance: EZETIMIBE
     Indication: Type IIa hyperlipidaemia
     Dosage: 10 MILLIGRAM, QD (EVERY 1 DAY)
     Route: 065
     Dates: start: 202206
  3. ROSUVASTATIN [Suspect]
     Active Substance: ROSUVASTATIN
     Indication: Type IIa hyperlipidaemia
     Dosage: 5 MILLIGRAM, QD (EVERY 1 DAY)
     Route: 065
     Dates: start: 2020
  4. SIMVASTATIN [Suspect]
     Active Substance: SIMVASTATIN
     Indication: Type IIa hyperlipidaemia
     Dosage: 10 MILLIGRAM, QD (EVERY 1 DAY)
     Route: 065
     Dates: start: 2018, end: 2019

REACTIONS (8)
  - Appetite disorder [Recovered/Resolved]
  - Blood creatine phosphokinase increased [Recovered/Resolved]
  - Dizziness [Recovered/Resolved]
  - Gastrointestinal disorder [Recovered/Resolved]
  - Hepatic enzyme increased [Recovered/Resolved]
  - Myalgia [Recovered/Resolved]
  - Nausea [Recovered/Resolved]
  - Vomiting [Recovered/Resolved]
